FAERS Safety Report 5684302-7 (Version None)
Quarter: 2008Q1

REPORT INFORMATION
  Report Type: 
  Country: None (occurrence: None)
  Receive Date: 20080328
  Receipt Date: 20080318
  Transmission Date: 20080703
  Serious: Yes (Hospitalization)
  Sender: FDA-Public Use
  Company Number: US-ABBOTT-08P-163-0442985-00

PATIENT
  Sex: Female
  Weight: 53.572 kg

DRUGS (4)
  1. SYNTHROID [Suspect]
     Indication: AUTOIMMUNE THYROIDITIS
     Route: 048
     Dates: start: 20050401, end: 20071101
  2. SYNTHROID [Suspect]
     Indication: THYROIDECTOMY
     Route: 048
     Dates: start: 20071101, end: 20071201
  3. SYNTHROID [Suspect]
     Route: 048
     Dates: start: 20071201, end: 20080201
  4. SYNTHROID [Suspect]
     Route: 048
     Dates: start: 20080201

REACTIONS (16)
  - ABDOMINAL PAIN [None]
  - ANOREXIA [None]
  - BIOPSY THYROID GLAND [None]
  - BLOOD PRESSURE INCREASED [None]
  - CHOLELITHIASIS [None]
  - DRUG HYPERSENSITIVITY [None]
  - FEELING JITTERY [None]
  - HEADACHE [None]
  - HEART RATE INCREASED [None]
  - INSOMNIA [None]
  - LABORATORY TEST ABNORMAL [None]
  - PSYCHOMOTOR HYPERACTIVITY [None]
  - RASH GENERALISED [None]
  - TINNITUS [None]
  - VOMITING [None]
  - WEIGHT DECREASED [None]
